FAERS Safety Report 7192487-9 (Version None)
Quarter: 2010Q4

REPORT INFORMATION
  Report Type: 
  Country: None (occurrence: None)
  Receive Date: 20101223
  Receipt Date: 20101215
  Transmission Date: 20110411
  Serious: Yes (Hospitalization)
  Sender: FDA-Public Use
  Company Number: CA-JNJFOC-20101206415

PATIENT
  Sex: Male
  Weight: 62.3 kg

DRUGS (2)
  1. REMICADE [Suspect]
     Indication: CROHN'S DISEASE
     Dosage: FIRST DOSE GIVEN WHILE HOSPITALIZED ON 04-DEC-2010
     Route: 042
  2. SOLU-MEDROL [Concomitant]

REACTIONS (2)
  - COLECTOMY TOTAL [None]
  - ILEOSTOMY [None]
